FAERS Safety Report 6413664-8 (Version None)
Quarter: 2009Q4

REPORT INFORMATION
  Report Type: 
  Country: None (occurrence: None)
  Receive Date: 20091026
  Receipt Date: 20091015
  Transmission Date: 20100525
  Serious: Yes (Other)
  Sender: FDA-Public Use
  Company Number: US-JNJFOC-20091005586

PATIENT
  Sex: Female
  Weight: 72.58 kg

DRUGS (10)
  1. REMICADE [Suspect]
     Route: 042
     Dates: start: 20090601, end: 20090922
  2. REMICADE [Suspect]
     Indication: COLITIS ULCERATIVE
     Dosage: INDUCTION AND THEN EVERY 8 WEEKS
     Route: 042
     Dates: start: 20090601, end: 20090922
  3. CRESTOR [Concomitant]
  4. FELODIPINE [Concomitant]
  5. FLUOXETINE [Concomitant]
  6. LEVOTHYROXINE SODIUM [Concomitant]
  7. LISINOPRIL [Concomitant]
  8. METOPROLOL [Concomitant]
  9. SULFASALAZINE [Concomitant]
  10. PREDNISONE [Concomitant]

REACTIONS (4)
  - ALOPECIA [None]
  - MYALGIA [None]
  - RASH [None]
  - TINEA PEDIS [None]
